FAERS Safety Report 22171696 (Version 1)
Quarter: 2023Q2

REPORT INFORMATION
  Report Type: Spontaneous
  Country: US (occurrence: US)
  Receive Date: 20230404
  Receipt Date: 20230404
  Transmission Date: 20230722
  Serious: No
  Sender: FDA-Public Use
  Company Number: US-002147023-NVSC2023US072672

PATIENT
  Sex: Female

DRUGS (1)
  1. SCEMBLIX [Suspect]
     Active Substance: ASCIMINIB HYDROCHLORIDE
     Indication: Product used for unknown indication
     Dosage: 40 MG, BID, PILL
     Route: 065
     Dates: start: 20230324

REACTIONS (6)
  - Rhinorrhoea [Unknown]
  - Oropharyngeal pain [Unknown]
  - Rash [Unknown]
  - Headache [Unknown]
  - Arthralgia [Unknown]
  - Dizziness [Unknown]
